FAERS Safety Report 16647502 (Version 2)
Quarter: 2019Q4

REPORT INFORMATION
  Report Type: Spontaneous
  Country: US (occurrence: US)
  Receive Date: 20190730
  Receipt Date: 20191022
  Transmission Date: 20200122
  Serious: No
  Sender: FDA-Public Use
  Company Number: US-PFIZER INC-2019321855

PATIENT
  Age: 66 Year
  Sex: Male
  Weight: 92.97 kg

DRUGS (1)
  1. SUTENT [Suspect]
     Active Substance: SUNITINIB MALATE
     Indication: RENAL CANCER
     Dosage: 50 MG, CYCLIC [1 TAB 4 WKS 2 WK OFF]

REACTIONS (1)
  - Hypoacusis [Recovered/Resolved]
